FAERS Safety Report 20856286 (Version 1)
Quarter: 2022Q2

REPORT INFORMATION
  Report Type: Other
  Country: None (occurrence: US)
  Receive Date: 20220520
  Receipt Date: 20220520
  Transmission Date: 20220721
  Serious: No
  Sender: FDA-Public Use
  Company Number: US-Murty Pharmaceuticals, Inc.-2129007

PATIENT
  Age: 89 Year
  Sex: Female

DRUGS (3)
  1. DIPYRIDAMOLE [Suspect]
     Active Substance: DIPYRIDAMOLE
     Route: 048
  2. METOPROLOL [Concomitant]
     Active Substance: METOPROLOL
  3. PRAVASTATIN [Concomitant]
     Active Substance: PRAVASTATIN

REACTIONS (3)
  - Rash [Unknown]
  - Abdominal discomfort [Unknown]
  - Headache [Unknown]
